FAERS Safety Report 5531448-X (Version None)
Quarter: 2007Q4

REPORT INFORMATION
  Report Type: 
  Country: None (occurrence: None)
  Receive Date: 20071128
  Receipt Date: 20071128
  Transmission Date: 20080405
  Serious: No
  Sender: FDA-Public Use
  Company Number: None

PATIENT
  Age: 69 Year
  Sex: Female
  Weight: 81.6475 kg

DRUGS (1)
  1. QUINUPRISTIN [Suspect]
     Indication: INFECTION
     Dosage: 500MG 3X DAILY
     Dates: start: 20071102, end: 20071112

REACTIONS (1)
  - DEAFNESS [None]
